FAERS Safety Report 8087005-7 (Version None)
Quarter: 2012Q1

REPORT INFORMATION
  Report Type: 
  Country: None (occurrence: None)
  Receive Date: 20120128
  Receipt Date: 20110520
  Transmission Date: 20120608
  Serious: No
  Sender: FDA-Public Use
  Company Number: US-ABBOTT-11P-163-0727583-00

PATIENT
  Age: 20 Year
  Sex: Female

DRUGS (7)
  1. FLONASE [Concomitant]
     Indication: RHINITIS ALLERGIC
  2. GLUCOSAMINE [Concomitant]
     Indication: MINERAL SUPPLEMENTATION
  3. MULTI-VITAMIN [Concomitant]
     Indication: VITAMIN SUPPLEMENTATION
  4. DEPO-PROVERA [Concomitant]
     Indication: CONTRACEPTION
  5. ADVAIR DISKUS 100/50 [Concomitant]
     Indication: RESPIRATORY DISORDER
     Route: 055
  6. HUMIRA [Suspect]
     Indication: PRODUCT USED FOR UNKNOWN INDICATION
     Route: 058
  7. UNKNOWN OTC MEDICATION [Concomitant]
     Indication: SEASONAL ALLERGY

REACTIONS (5)
  - PARONYCHIA [None]
  - OEDEMA PERIPHERAL [None]
  - HYPERPLASIA [None]
  - INFLAMMATION [None]
  - SKIN DISORDER [None]
